FAERS Safety Report 18457187 (Version 1)
Quarter: 2020Q4

REPORT INFORMATION
  Report Type: Spontaneous
  Country: PL (occurrence: PL)
  Receive Date: 20201103
  Receipt Date: 20201103
  Transmission Date: 20210114
  Serious: Yes (Hospitalization)
  Sender: FDA-Public Use
  Company Number: NVSC2020PL290695

PATIENT
  Age: 62 Year
  Sex: Male

DRUGS (2)
  1. RAMIPRIL. [Suspect]
     Active Substance: RAMIPRIL
     Indication: HYPERTENSION
     Dosage: 10 MG
     Route: 065
  2. AMLODIPINE [Suspect]
     Active Substance: AMLODIPINE BESYLATE
     Indication: HYPERTENSION
     Dosage: 10 MG
     Route: 065

REACTIONS (8)
  - Cardiac failure [Unknown]
  - Asthenia [Unknown]
  - Iron deficiency [Unknown]
  - Microcytic anaemia [Unknown]
  - Palpitations [Unknown]
  - Carotid arteriosclerosis [Unknown]
  - Oedema peripheral [Unknown]
  - Dyspnoea at rest [Unknown]
